FAERS Safety Report 9175276 (Version 3)
Quarter: 2013Q2

REPORT INFORMATION
  Report Type: Report from Study
  Country: CO (occurrence: CO)
  Receive Date: 20130320
  Receipt Date: 20130514
  Transmission Date: 20140414
  Serious: Yes (Hospitalization)
  Sender: FDA-Public Use
  Company Number: CO-ROCHE-1200329

PATIENT
  Age: 51 Year
  Sex: Female
  Weight: 79.4 kg

DRUGS (8)
  1. TRASTUZUMAB [Suspect]
     Indication: HER-2 POSITIVE BREAST CANCER
     Route: 042
     Dates: start: 20130130, end: 20130221
  2. TRASTUZUMAB [Suspect]
     Dosage: DATE OF LAST PRIOR TO SAE: 21/FEB/2013
     Route: 042
     Dates: end: 20130221
  3. PACLITAXEL [Suspect]
     Indication: HER-2 POSITIVE BREAST CANCER
     Dosage: UNIT DOSE AS PER PROTOCOL.
     Route: 065
     Dates: start: 20130130
  4. AMLODIPINO [Concomitant]
     Route: 065
     Dates: start: 20121115
  5. ACETAMINOPHEN [Concomitant]
     Route: 065
     Dates: start: 20120816
  6. GABAPENTIN [Concomitant]
     Route: 065
     Dates: start: 20130410
  7. PERTUZUMAB [Suspect]
     Indication: HER-2 POSITIVE BREAST CANCER
     Route: 042
     Dates: start: 20130130
  8. PERTUZUMAB [Suspect]
     Dosage: DATE OF LAST PRIOR TO SAE: 21/FEB/2013
     Route: 042

REACTIONS (1)
  - Pneumonitis [Recovered/Resolved]
